FAERS Safety Report 7342993-9 (Version None)
Quarter: 2011Q1

REPORT INFORMATION
  Report Type: 
  Country: None (occurrence: None)
  Receive Date: 20110310
  Receipt Date: 20110302
  Transmission Date: 20110831
  Serious: Yes (Other)
  Sender: FDA-Public Use
  Company Number: PHHY2011US17870

PATIENT
  Sex: Female

DRUGS (2)
  1. VALTREX [Concomitant]
     Dosage: UNK
  2. GILENYA [Suspect]
     Indication: MULTIPLE SCLEROSIS
     Dosage: 0.5 MG, DAILY
     Route: 048
     Dates: start: 20101203

REACTIONS (4)
  - CONCOMITANT DISEASE AGGRAVATED [None]
  - DYSARTHRIA [None]
  - ANXIETY [None]
  - EYE PAIN [None]
